FAERS Safety Report 7128818-5 (Version None)
Quarter: 2010Q4

REPORT INFORMATION
  Report Type: 
  Country: None (occurrence: None)
  Receive Date: 20101130
  Receipt Date: 20101129
  Transmission Date: 20110411
  Serious: Yes (Hospitalization)
  Sender: FDA-Public Use
  Company Number: US-SHIRE-SPV1-2010-02071

PATIENT
  Sex: Female
  Weight: 30.839 kg

DRUGS (4)
  1. DAYTRANA [Suspect]
     Indication: ATTENTION DEFICIT/HYPERACTIVITY DISORDER
     Dosage: 15 MG, 1X/DAY:QD
     Route: 062
     Dates: start: 20090901
  2. ALBUTEROL [Concomitant]
     Indication: ASTHMA
     Dosage: 2.5MG PER VIAL
     Route: 055
     Dates: start: 20080101
  3. PULMICORT [Concomitant]
     Indication: ASTHMA
     Dosage: 0.5MG/2ML
     Route: 055
     Dates: start: 20080101
  4. PROAIR HFA [Concomitant]
     Indication: ASTHMA
     Dosage: 200 METERED ON 6
     Route: 055
     Dates: start: 20080101

REACTIONS (3)
  - ASTHMA [None]
  - CONDITION AGGRAVATED [None]
  - OFF LABEL USE [None]
